FAERS Safety Report 4635656-1 (Version None)
Quarter: 2005Q2

REPORT INFORMATION
  Report Type: 
  Country: None (occurrence: None)
  Receive Date: 20050414
  Receipt Date: 20050329
  Transmission Date: 20051028
  Serious: Yes (Hospitalization)
  Sender: FDA-Public Use
  Company Number: 10731

PATIENT
  Age: 69 Year
  Sex: Male

DRUGS (6)
  1. METHOTREXATE [Suspect]
  2. ETANERCEPT [Suspect]
     Indication: RHEUMATOID ARTHRITIS
     Dosage: 25 MG 2/WK
     Route: 058
     Dates: end: 20030113
  3. CELECOXIB [Concomitant]
  4. PREDNISOLONE [Concomitant]
  5. DEXTROPROPOXYPHENE HYDROCHLORIDE/PARACETAMOL [Concomitant]
  6. BENDROFLUAZIDE [Concomitant]

REACTIONS (1)
  - HERNIA [None]
